FAERS Safety Report 15835006 (Version 2)
Quarter: 2019Q2

REPORT INFORMATION
  Report Type: Spontaneous
  Country: US (occurrence: US)
  Receive Date: 20190116
  Receipt Date: 20190416
  Transmission Date: 20190711
  Serious: No
  Sender: FDA-Public Use
  Company Number: US-CHILTERN-US-2018-000253

PATIENT
  Sex: Male

DRUGS (1)
  1. RHOPRESSA [Suspect]
     Active Substance: NETARSUDIL MESYLATE
     Indication: OPEN ANGLE GLAUCOMA
     Dosage: 1 GTT, QD RIGHT EYE AT NIGHT
     Route: 047
     Dates: start: 201810, end: 201812

REACTIONS (1)
  - Cornea verticillata [Recovered/Resolved]

NARRATIVE: CASE EVENT DATE: 201810
